FAERS Safety Report 15768322 (Version 1)
Quarter: 2018Q4

REPORT INFORMATION
  Report Type: Spontaneous
  Country: IL (occurrence: IL)
  Receive Date: 20181227
  Receipt Date: 20181227
  Transmission Date: 20190205
  Serious: Yes (Hospitalization, Other)
  Sender: FDA-Public Use
  Company Number: PHHY2018IL193619

PATIENT
  Age: 78 Year
  Sex: Male

DRUGS (1)
  1. PREDNISONE. [Suspect]
     Active Substance: PREDNISONE
     Indication: DEAFNESS
     Dosage: HIGH DOSE
     Route: 048

REACTIONS (2)
  - Strongyloidiasis [Recovered/Resolved]
  - Product use in unapproved indication [Unknown]
